FAERS Safety Report 14374900 (Version 1)
Quarter: 2018Q1

REPORT INFORMATION
  Report Type: Spontaneous
  Country: US (occurrence: US)
  Receive Date: 20180110
  Receipt Date: 20180110
  Transmission Date: 20180509
  Serious: Yes (Other)
  Sender: FDA-Public Use
  Company Number: None

PATIENT
  Age: 67 Year
  Sex: Female

DRUGS (1)
  1. AMPYRA [Suspect]
     Active Substance: DALFAMPRIDINE
     Indication: MULTIPLE SCLEROSIS
     Route: 048
     Dates: start: 201106

REACTIONS (5)
  - Facial pain [None]
  - Headache [None]
  - Rhinalgia [None]
  - Epistaxis [None]
  - Insomnia [None]

NARRATIVE: CASE EVENT DATE: 20171218
